FAERS Safety Report 14739301 (Version 1)
Quarter: 2018Q2

REPORT INFORMATION
  Report Type: Spontaneous
  Country: PT (occurrence: PT)
  Receive Date: 20180410
  Receipt Date: 20180410
  Transmission Date: 20180711
  Serious: Yes (Other)
  Sender: FDA-Public Use
  Company Number: PT-ACCORD-065434

PATIENT
  Age: 56 Year
  Sex: Female

DRUGS (9)
  1. CLOZAPINE. [Suspect]
     Active Substance: CLOZAPINE
     Indication: PRODUCT USED FOR UNKNOWN INDICATION
  2. BUPROPION/BUPROPION HYDROCHLORIDE [Concomitant]
  3. ATENOLOL/ATENOLOL HYDROCHLORIDE [Concomitant]
  4. TOPIRAMATE. [Concomitant]
     Active Substance: TOPIRAMATE
  5. LEVOTHYROXINE. [Concomitant]
     Active Substance: LEVOTHYROXINE
  6. ATORVASTATIN [Concomitant]
     Active Substance: ATORVASTATIN
  7. MIRABEGRON [Interacting]
     Active Substance: MIRABEGRON
     Indication: URINARY INCONTINENCE
  8. CLONAZEPAM. [Concomitant]
     Active Substance: CLONAZEPAM
  9. LITHIUM. [Concomitant]
     Active Substance: LITHIUM

REACTIONS (2)
  - Drug interaction [Unknown]
  - Pleurothotonus [Recovered/Resolved]
